FAERS Safety Report 8964181 (Version 2)
Quarter: 2013Q1

REPORT INFORMATION
  Report Type: Spontaneous
  Country: NL (occurrence: NL)
  Receive Date: 20121213
  Receipt Date: 20130116
  Transmission Date: 20140127
  Serious: Yes (Hospitalization)
  Sender: FDA-Public Use
  Company Number: NL-B.I. PHARMACEUTICALS,INC./RIDGEFIELD-2012-NL-00527NL

PATIENT
  Sex: Female

DRUGS (1)
  1. PRADAXA [Suspect]
     Indication: KNEE OPERATION
     Dosage: 440 MG
     Dates: end: 20120915

REACTIONS (2)
  - Accidental overdose [Recovered/Resolved]
  - Wrong drug administered [Recovered/Resolved]
